FAERS Safety Report 4726872-9 (Version None)
Quarter: 2005Q3

REPORT INFORMATION
  Report Type: 
  Country: None (occurrence: None)
  Receive Date: 20050727
  Receipt Date: 20050727
  Transmission Date: 20060218
  Serious: Yes (Hospitalization)
  Sender: FDA-Public Use
  Company Number: None

PATIENT
  Sex: Female
  Weight: 54 kg

DRUGS (1)
  1. ORTHO EVRA [Suspect]
     Indication: POLYCYSTIC OVARIES
     Dosage: ONE PATCH TOP Q 7 DAYS
     Route: 061

REACTIONS (11)
  - ANTINUCLEAR ANTIBODY POSITIVE [None]
  - ANTITHROMBIN III INCREASED [None]
  - COAGULATION FACTOR VIII LEVEL INCREASED [None]
  - COAGULATION FACTOR XIII LEVEL DECREASED [None]
  - GRAND MAL CONVULSION [None]
  - HAEMORRHAGIC CEREBRAL INFARCTION [None]
  - HEADACHE [None]
  - PROTEIN TOTAL DECREASED [None]
  - PUPIL FIXED [None]
  - TINNITUS [None]
  - VENOUS ANGIOMA OF BRAIN [None]
